FAERS Safety Report 5497081-3 (Version None)
Quarter: 2007Q4

REPORT INFORMATION
  Report Type: 
  Country: None (occurrence: None)
  Receive Date: 20071023
  Receipt Date: 20071015
  Transmission Date: 20080405
  Serious: Yes (Hospitalization)
  Sender: FDA-Public Use
  Company Number: 162923USA

PATIENT
  Age: 18 Year
  Sex: Female

DRUGS (2)
  1. PIMOZIDE TABLETS (PIMOZIDE) [Suspect]
     Dosage: 1 MG (1 MG, 1 IN 1 D) ORAL
     Route: 048
     Dates: start: 20050601, end: 20070930
  2. PAROXETINE HCL [Suspect]
     Dates: end: 20070930

REACTIONS (2)
  - BLOOD CREATINE PHOSPHOKINASE INCREASED [None]
  - DIZZINESS [None]
